FAERS Safety Report 21505767 (Version 1)
Quarter: 2022Q4

REPORT INFORMATION
  Report Type: Other
  Country: IN (occurrence: None)
  Receive Date: 20221026
  Receipt Date: 20221026
  Transmission Date: 20230113
  Serious: Yes (Death)
  Sender: FDA-Public Use
  Company Number: IN-ROCHE-3116972

PATIENT
  Age: 67 Year
  Sex: Female

DRUGS (1)
  1. GAZYVA [Suspect]
     Active Substance: OBINUTUZUMAB
     Indication: Diffuse large B-cell lymphoma
     Dosage: INJECTION
     Route: 042
     Dates: start: 20220603

REACTIONS (2)
  - Off label use [Unknown]
  - Neoplasm malignant [Fatal]
